FAERS Safety Report 14666051 (Version 1)
Quarter: 2018Q1

REPORT INFORMATION
  Report Type: Spontaneous
  Country: DE (occurrence: DE)
  Receive Date: 20180321
  Receipt Date: 20180321
  Transmission Date: 20180509
  Serious: Yes (Other)
  Sender: FDA-Public Use
  Company Number: DE-TEVA-2018-DE-868280

PATIENT
  Age: 64 Year
  Sex: Male

DRUGS (1)
  1. FOLSAEURE-RATIOPHARM 5 MG TABLETTEN [Suspect]
     Active Substance: FOLIC ACID
     Route: 048

REACTIONS (1)
  - Arrhythmia [Unknown]
